FAERS Safety Report 6551324-3 (Version None)
Quarter: 2010Q1

REPORT INFORMATION
  Report Type: 
  Country: None (occurrence: None)
  Receive Date: 20100120
  Receipt Date: 20100115
  Transmission Date: 20100710
  Serious: Yes (Hospitalization)
  Sender: FDA-Public Use
  Company Number: 2010SP003343

PATIENT
  Sex: Male
  Weight: 82 kg

DRUGS (6)
  1. PEGINTERFERON ALFA-2B (S-P) (PEGINTERFERON ALFA-2B) [Suspect]
     Indication: HEPATITIS C
     Dosage: 120 MCG;QW;
     Dates: start: 20090710
  2. REBETOL [Suspect]
     Indication: HEPATITIS C
     Dosage: 1200 MG;QD
     Dates: start: 20090710
  3. METHADONE [Concomitant]
  4. XANAX [Concomitant]
  5. SANVAL /00914901/ [Concomitant]
  6. NAPROSYN [Concomitant]

REACTIONS (4)
  - ACUTE RESPIRATORY DISTRESS SYNDROME [None]
  - PNEUMONIA [None]
  - RESPIRATORY FAILURE [None]
  - STREPTOCOCCAL SEPSIS [None]
